FAERS Safety Report 12559244 (Version 1)
Quarter: 2016Q3

REPORT INFORMATION
  Report Type: Spontaneous
  Country: US (occurrence: US)
  Receive Date: 20160715
  Receipt Date: 20160715
  Transmission Date: 20161109
  Serious: Yes (Other)
  Sender: FDA-Public Use
  Company Number: US-AMGEN-USASP2016090452

PATIENT
  Age: 72 Year
  Sex: Female

DRUGS (1)
  1. ENBREL [Suspect]
     Active Substance: ETANERCEPT
     Indication: PRODUCT USED FOR UNKNOWN INDICATION
     Dosage: UNK
     Route: 065
     Dates: start: 2004, end: 201607

REACTIONS (17)
  - Adverse event [Unknown]
  - Malaise [Unknown]
  - Diabetes mellitus [Not Recovered/Not Resolved]
  - Pain in extremity [Not Recovered/Not Resolved]
  - Cataract [Unknown]
  - Abasia [Unknown]
  - Neuropathy peripheral [Unknown]
  - Hyperthyroidism [Unknown]
  - Haemoglobin decreased [Unknown]
  - Grip strength decreased [Unknown]
  - Drug dose omission [Unknown]
  - Peripheral swelling [Recovering/Resolving]
  - Intestinal obstruction [Unknown]
  - Rheumatoid arthritis [Unknown]
  - Pain [Unknown]
  - Activities of daily living impaired [Recovering/Resolving]
  - Hypertension [Unknown]

NARRATIVE: CASE EVENT DATE: 2013
